FAERS Safety Report 24627702 (Version 1)
Quarter: 2024Q4

REPORT INFORMATION
  Report Type: Spontaneous
  Country: FR (occurrence: FR)
  Receive Date: 20241116
  Receipt Date: 20241116
  Transmission Date: 20250115
  Serious: Yes (Hospitalization)
  Sender: TEVA
  Company Number: None

PATIENT
  Age: 66 Year
  Sex: Male
  Weight: 148 kg

DRUGS (14)
  1. AMIODARONE [Suspect]
     Active Substance: AMIODARONE
     Indication: Atrial fibrillation
     Route: 048
     Dates: start: 202107
  2. IRBESARTAN [Suspect]
     Active Substance: IRBESARTAN
     Indication: Diabetes mellitus
     Route: 048
     Dates: start: 202402, end: 20241001
  3. AMLODIPINE [Suspect]
     Active Substance: AMLODIPINE BESYLATE
     Indication: Hypertension
     Route: 048
     Dates: end: 20241005
  4. OZEMPIC [Concomitant]
     Active Substance: SEMAGLUTIDE
     Indication: Product used for unknown indication
     Route: 058
  5. XARELTO [Concomitant]
     Active Substance: RIVAROXABAN
     Indication: Product used for unknown indication
     Route: 048
     Dates: end: 20241004
  6. HUMALOG [Concomitant]
     Active Substance: INSULIN LISPRO
     Indication: Product used for unknown indication
     Route: 058
  7. DAPAGLIFLOZIN [Suspect]
     Active Substance: DAPAGLIFLOZIN
     Indication: Diabetes mellitus
     Route: 048
     Dates: end: 20241001
  8. ALLOPURINOL [Concomitant]
     Active Substance: ALLOPURINOL
     Indication: Product used for unknown indication
     Route: 048
  9. FUROSEMIDE [Concomitant]
     Active Substance: FUROSEMIDE
     Indication: Product used for unknown indication
     Route: 048
  10. SYMBICORT [Concomitant]
     Active Substance: BUDESONIDE\FORMOTEROL FUMARATE DIHYDRATE
     Indication: Product used for unknown indication
     Route: 065
  11. SPIRIVA [Concomitant]
     Active Substance: TIOTROPIUM BROMIDE MONOHYDRATE
     Indication: Product used for unknown indication
     Route: 065
  12. URAPIDIL [Suspect]
     Active Substance: URAPIDIL
     Indication: Hypertension
     Route: 048
     Dates: end: 20241003
  13. TRESIBA [Concomitant]
     Active Substance: INSULIN DEGLUDEC
     Indication: Product used for unknown indication
     Route: 058
  14. LEVOTHYROXINE [Concomitant]
     Active Substance: LEVOTHYROXINE
     Indication: Product used for unknown indication
     Dosage: 100 MICROGRAMS, SCORED TABLET
     Route: 048

REACTIONS (1)
  - Hepatic cytolysis [Recovering/Resolving]

NARRATIVE: CASE EVENT DATE: 20241001
